FAERS Safety Report 8352326-7 (Version None)
Quarter: 2012Q2

REPORT INFORMATION
  Report Type: 
  Country: None (occurrence: None)
  Receive Date: 20120511
  Receipt Date: 20120503
  Transmission Date: 20120825
  Serious: Yes (Hospitalization)
  Sender: FDA-Public Use
  Company Number: US-BAYER-2012-044625

PATIENT
  Age: 45 Year
  Sex: Female
  Weight: 82 kg

DRUGS (17)
  1. CEPHALEXIN [Concomitant]
     Dosage: 500 MG, UNK
     Dates: start: 20080409
  2. XOPENEX [Concomitant]
     Dosage: 1.25MG/3ML
     Dates: start: 20080602
  3. METHYLPREDNISOLONE [Concomitant]
     Dosage: 8 MG, UNK
     Dates: start: 20080602
  4. FLONASE [Concomitant]
     Dosage: 50 ?G, QD
     Dates: start: 20080409
  5. DEXTROMETHORPHAN HYDROBROMIDE [Concomitant]
     Dosage: UNK
     Dates: start: 20080409
  6. ATIVAN [Concomitant]
  7. IPRATROPIUM BROMIDE [Concomitant]
     Dosage: 0.02 %, UNK
     Dates: start: 20080602
  8. YASMIN [Suspect]
     Indication: CONTRACEPTION
     Dosage: UNK
     Dates: start: 20070507, end: 20080622
  9. AVELOX [Concomitant]
  10. CARDIZEM [Concomitant]
     Indication: SINUS TACHYCARDIA
     Dosage: UNK
     Dates: start: 20071011
  11. ACIPHEX [Concomitant]
     Dosage: UNK
     Dates: start: 20080409
  12. METHYLPREDNISOLONE [Concomitant]
     Dosage: 4 MG, UNK
     Dates: start: 20080409
  13. MEDROL [Concomitant]
     Dosage: UNK
     Route: 040
     Dates: start: 20080529
  14. CERON DM (CHLORPHENIRAMINE/DEXTROMETHORPHAN/PHENYLEPHRINE) [Concomitant]
  15. NYSTATIN [Concomitant]
     Dosage: 100000 U, UNK
     Dates: start: 20080602
  16. DAYQUIL [DEXTROMET HBR,GUAIF,PARACET,PSEUDOEPH HCL] [Concomitant]
     Dosage: UNK
     Dates: start: 20080409
  17. CP DEC-DM (CHLORPHENIRAMINE/DEXTROMETHORPHAN/PHENYLEPHRINE) [Concomitant]
     Dosage: UNK
     Dates: start: 20080527

REACTIONS (9)
  - HEART RATE INCREASED [None]
  - TENDERNESS [None]
  - PULMONARY EMBOLISM [None]
  - SINUS TACHYCARDIA [None]
  - OEDEMA PERIPHERAL [None]
  - THROMBOSIS [None]
  - CHEST PAIN [None]
  - DEEP VEIN THROMBOSIS [None]
  - DYSPNOEA [None]
